FAERS Safety Report 6311371-3 (Version None)
Quarter: 2009Q3

REPORT INFORMATION
  Report Type: 
  Country: None (occurrence: None)
  Receive Date: 20090817
  Receipt Date: 20090810
  Transmission Date: 20100115
  Serious: Yes (Death)
  Sender: FDA-Public Use
  Company Number: JP-CELGENEUS-087-50794-09080811

PATIENT
  Sex: Male

DRUGS (2)
  1. VIDAZA [Suspect]
     Indication: MYELODYSPLASTIC SYNDROME
     Route: 058
     Dates: start: 20090525, end: 20090531
  2. VIDAZA [Suspect]
     Route: 058
     Dates: start: 20090708, end: 20090714

REACTIONS (1)
  - GASTROINTESTINAL INFECTION [None]
